FAERS Safety Report 4738028-4 (Version None)
Quarter: 2005Q3

REPORT INFORMATION
  Report Type: 
  Country: None (occurrence: None)
  Receive Date: 20050805
  Receipt Date: 20050726
  Transmission Date: 20060218
  Serious: Yes (Other)
  Sender: FDA-Public Use
  Company Number: 2005107786

PATIENT
  Age: 18 Day
  Sex: Male

DRUGS (3)
  1. PHENYTOIN SODIUM [Suspect]
     Indication: CONVULSION
     Dosage: INTRAVENOUS
     Route: 042
  2. LUNG SURFACTANTS (LUNG SURFACTANTS) [Concomitant]
  3. PHENOBARBITAL TAB [Concomitant]

REACTIONS (11)
  - ALANINE AMINOTRANSFERASE INCREASED [None]
  - BLOOD PRESSURE DECREASED [None]
  - DERMATITIS EXFOLIATIVE [None]
  - DRUG HYPERSENSITIVITY [None]
  - FACE OEDEMA [None]
  - HEART RATE INCREASED [None]
  - OEDEMA PERIPHERAL [None]
  - PERIORBITAL OEDEMA [None]
  - PYREXIA [None]
  - RASH ERYTHEMATOUS [None]
  - WHITE BLOOD CELL COUNT INCREASED [None]
